FAERS Safety Report 9670313 (Version 1)
Quarter: 2013Q4

REPORT INFORMATION
  Report Type: Spontaneous
  Country: FR (occurrence: FR)
  Receive Date: 20131105
  Receipt Date: 20131105
  Transmission Date: 20140711
  Serious: Yes (Hospitalization)
  Sender: FDA-Public Use
  Company Number: FR-TEVA-440656ISR

PATIENT
  Age: 65 Year
  Sex: Female

DRUGS (4)
  1. FLUOROURACILE TEVA [Suspect]
     Indication: PANCREATIC CARCINOMA
     Route: 041
     Dates: start: 20130816
  2. OXALIPLATINE TEVA 5MG/ML [Suspect]
     Indication: PANCREATIC CARCINOMA
     Route: 041
     Dates: start: 20130816
  3. IRINOTECAN HOSPIRA 20MG/ML [Suspect]
     Indication: PANCREATIC CARCINOMA
     Route: 041
     Dates: start: 20130816
  4. FOLINATE DE CALCIUM [Concomitant]
     Route: 041
     Dates: start: 20130816

REACTIONS (4)
  - Weight decreased [Not Recovered/Not Resolved]
  - Nausea [Not Recovered/Not Resolved]
  - Vomiting [Not Recovered/Not Resolved]
  - Diarrhoea [Not Recovered/Not Resolved]
